FAERS Safety Report 7076546-7 (Version None)
Quarter: 2010Q4

REPORT INFORMATION
  Report Type: 
  Country: None (occurrence: None)
  Receive Date: 20101101
  Receipt Date: 20101020
  Transmission Date: 20110411
  Serious: Yes (Hospitalization)
  Sender: FDA-Public Use
  Company Number: BR-PFIZER INC-2010063976

PATIENT
  Age: 52 Year
  Sex: Male
  Weight: 58 kg

DRUGS (3)
  1. CHAMPIX [Suspect]
     Indication: TOBACCO USER
     Dosage: UNK
     Route: 048
     Dates: start: 20100418, end: 20100101
  2. CHAMPIX [Suspect]
     Dosage: 1 MG, 2X/DAY (EVERY 12 HOURS)
     Route: 048
     Dates: end: 20100101
  3. LOSARTAN POTASSIUM [Concomitant]
     Indication: HYPERTENSION

REACTIONS (3)
  - CEREBROVASCULAR ACCIDENT [None]
  - CONVULSION [None]
  - HYPERTENSION [None]
